FAERS Safety Report 17171989 (Version 1)
Quarter: 2019Q4

REPORT INFORMATION
  Report Type: Spontaneous
  Country: US (occurrence: US)
  Receive Date: 20191218
  Receipt Date: 20191218
  Transmission Date: 20200122
  Serious: Yes (Hospitalization)
  Sender: FDA-Public Use
  Company Number: US-ANIPHARMA-2019-US-023780

PATIENT
  Age: 70 Year
  Sex: Female
  Weight: 90.72 kg

DRUGS (14)
  1. LEVOTHYROXINE. [Concomitant]
     Active Substance: LEVOTHYROXINE
  2. UNSPECIFIED WATER PILL [Concomitant]
     Active Substance: UNSPECIFIED INGREDIENT
  3. ATORVASTATIN [Concomitant]
     Active Substance: ATORVASTATIN
  4. TOPIRAMATE. [Concomitant]
     Active Substance: TOPIRAMATE
  5. VITAMIN B12 [Concomitant]
     Active Substance: CYANOCOBALAMIN
  6. METOPROLOL. [Concomitant]
     Active Substance: METOPROLOL
  7. OPIUM TINCTURE [Suspect]
     Active Substance: MORPHINE
     Indication: DIARRHOEA
     Dosage: 0.2MG AT NIGHT AND 0.3MG IN THE MORNING
     Route: 048
     Dates: start: 20191124
  8. TUMERIC [Concomitant]
     Active Substance: HERBALS\TURMERIC
  9. CRANBERRY. [Concomitant]
     Active Substance: CRANBERRY
  10. FISH OIL [Concomitant]
     Active Substance: FISH OIL
  11. ASPIRIN. [Concomitant]
     Active Substance: ASPIRIN
  12. PREDNISONE. [Concomitant]
     Active Substance: PREDNISONE
  13. IRBESARTAN. [Concomitant]
     Active Substance: IRBESARTAN
  14. ALLOPURINOL. [Concomitant]
     Active Substance: ALLOPURINOL

REACTIONS (7)
  - Fatigue [Unknown]
  - Asthenia [Unknown]
  - Off label use [Not Recovered/Not Resolved]
  - Laboratory test abnormal [Unknown]
  - Syncope [Unknown]
  - Blood creatinine increased [Not Recovered/Not Resolved]
  - Dizziness [Unknown]

NARRATIVE: CASE EVENT DATE: 20191124
